FAERS Safety Report 10698012 (Version 2)
Quarter: 2015Q1

REPORT INFORMATION
  Report Type: Spontaneous
  Country: US (occurrence: US)
  Receive Date: 20150108
  Receipt Date: 20150108
  Transmission Date: 20150721
  Serious: No
  Sender: FDA-Public Use
  Company Number: US-ELI_LILLY_AND_COMPANY-US201309008692

PATIENT
  Age: 51 Year
  Sex: Male

DRUGS (4)
  1. HUMALOG [Suspect]
     Active Substance: INSULIN LISPRO
     Dosage: UNK, PRN
     Route: 065
     Dates: start: 2004
  2. HUMALOG [Suspect]
     Active Substance: INSULIN LISPRO
     Indication: TYPE 1 DIABETES MELLITUS
     Dosage: UNK, UNKNOWN
  3. LANTUS [Concomitant]
     Active Substance: INSULIN GLARGINE
     Dosage: UNK, EACH EVENING
  4. HUMALOG [Suspect]
     Active Substance: INSULIN LISPRO
     Indication: TYPE 1 DIABETES MELLITUS
     Dosage: 50 TO 60 U, QD
     Route: 065
     Dates: start: 2004

REACTIONS (7)
  - Intercepted drug dispensing error [Unknown]
  - Incorrect product storage [Unknown]
  - Blood glucose increased [Unknown]
  - Blood glucose abnormal [Unknown]
  - Blood glucose increased [Unknown]
  - Drug ineffective [Recovered/Resolved]
  - Malaise [Unknown]

NARRATIVE: CASE EVENT DATE: 201412
